FAERS Safety Report 15263585 (Version 1)
Quarter: 2018Q3

REPORT INFORMATION
  Report Type: Spontaneous
  Country: US (occurrence: US)
  Receive Date: 20180720
  Receipt Date: 20180720
  Transmission Date: 20181010
  Serious: Yes (Disabling, Other)
  Sender: FDA-Public Use
  Company Number: None

PATIENT
  Age: 65 Year
  Sex: Female
  Weight: 58.97 kg

DRUGS (1)
  1. LEVOFLOXACIN, 500MG [Suspect]
     Active Substance: LEVOFLOXACIN
     Indication: GASTROINTESTINAL INFECTION
     Dosage: ?          QUANTITY:10 DF DOSAGE FORM;?
     Route: 048
     Dates: start: 20180912, end: 20180915

REACTIONS (9)
  - Myalgia [None]
  - Arthralgia [None]
  - Joint swelling [None]
  - Pain in extremity [None]
  - Neck pain [None]
  - Therapy cessation [None]
  - Peripheral swelling [None]
  - Tendon pain [None]
  - Neuropathy peripheral [None]

NARRATIVE: CASE EVENT DATE: 20161001
